FAERS Safety Report 11525451 (Version 1)
Quarter: 2015Q3

REPORT INFORMATION
  Report Type: Spontaneous
  Country: CH (occurrence: CH)
  Receive Date: 20150918
  Receipt Date: 20150918
  Transmission Date: 20151125
  Serious: Yes (Other)
  Sender: FDA-Public Use
  Company Number: CH-GLAXOSMITHKLINE-CH2015GSK133938

PATIENT
  Age: 61 Year
  Sex: Male

DRUGS (2)
  1. DABRAFENIB [Suspect]
     Active Substance: DABRAFENIB
     Indication: METASTATIC MALIGNANT MELANOMA
  2. TRAMETINIB [Concomitant]
     Active Substance: TRAMETINIB
     Indication: METASTATIC MALIGNANT MELANOMA

REACTIONS (2)
  - Sweat gland tumour [Recovered/Resolved]
  - Rash [Recovered/Resolved]
